FAERS Safety Report 15370791 (Version 1)
Quarter: 2018Q3

REPORT INFORMATION
  Report Type: Spontaneous
  Country: US (occurrence: US)
  Receive Date: 20180911
  Receipt Date: 20180911
  Transmission Date: 20181010
  Serious: Yes (Hospitalization, Other)
  Sender: FDA-Public Use
  Company Number: US-ELI_LILLY_AND_COMPANY-US201809002428

PATIENT
  Sex: Female

DRUGS (2)
  1. HUMALOG MIX75/25 [Suspect]
     Active Substance: INSULIN LISPRO
     Dosage: 40?45 U, PRN (AT NIGHT)
     Route: 065
  2. HUMALOG MIX75/25 [Suspect]
     Active Substance: INSULIN LISPRO
     Indication: PRODUCT USED FOR UNKNOWN INDICATION
     Dosage: 60 U, EACH MORNING
     Route: 065

REACTIONS (6)
  - Drug dose omission [Recovering/Resolving]
  - Visual impairment [Not Recovered/Not Resolved]
  - Diabetes mellitus inadequate control [Unknown]
  - Retinal haemorrhage [Recovering/Resolving]
  - Arnold-Chiari malformation [Not Recovered/Not Resolved]
  - Retinal detachment [Recovering/Resolving]
